FAERS Safety Report 7347249-6 (Version None)
Quarter: 2011Q1

REPORT INFORMATION
  Report Type: 
  Country: None (occurrence: None)
  Receive Date: 20110311
  Receipt Date: 20110303
  Transmission Date: 20110831
  Serious: No
  Sender: FDA-Public Use
  Company Number: US-PFIZER INC-2011013567

PATIENT
  Sex: Female
  Weight: 77 kg

DRUGS (3)
  1. ESTRING [Suspect]
     Indication: VULVOVAGINAL DRYNESS
  2. ESTRING [Suspect]
     Indication: HORMONE REPLACEMENT THERAPY
     Dosage: 2 MG, UNK
     Route: 067
     Dates: start: 20110119, end: 20110119
  3. ESTRING [Suspect]
     Indication: ATROPHIC VULVOVAGINITIS

REACTIONS (3)
  - NAUSEA [None]
  - HEADACHE [None]
  - VOMITING [None]
